FAERS Safety Report 5524906-5 (Version None)
Quarter: 2007Q4

REPORT INFORMATION
  Report Type: 
  Country: None (occurrence: None)
  Receive Date: 20071119
  Receipt Date: 20071102
  Transmission Date: 20080405
  Serious: Yes (Hospitalization)
  Sender: FDA-Public Use
  Company Number: 2007US002636

PATIENT
  Age: 63 Year
  Sex: Male

DRUGS (10)
  1. PROGRAF [Suspect]
     Indication: RENAL TRANSPLANT
     Dosage: 2 MG, BID, ORAL
     Route: 048
     Dates: start: 20041208
  2. MYCOPHENOLATE MOFETIL [Suspect]
     Indication: RENAL TRANSPLANT
     Dosage: 1000 MG, BID, ORAL
     Route: 048
     Dates: start: 20041208
  3. PREDNISONE [Suspect]
     Indication: RENAL TRANSPLANT
     Dosage: 10 MG; ORAL
     Route: 048
     Dates: start: 20041208
  4. FUROSEMIDE [Concomitant]
  5. CLONIDINE [Concomitant]
  6. OMEPRAZOLE [Concomitant]
  7. ROSIGLITAZONE [Concomitant]
  8. VALGANCICLOVIR HCL [Concomitant]
  9. BACTRIM DS [Concomitant]
  10. CLOTRIMAZOLE [Concomitant]

REACTIONS (3)
  - COMPLICATIONS OF TRANSPLANT SURGERY [None]
  - FLUID RETENTION [None]
  - RETROPERITONEAL EFFUSION [None]
